FAERS Safety Report 16211643 (Version 1)
Quarter: 2019Q2

REPORT INFORMATION
  Report Type: Spontaneous
  Country: US (occurrence: US)
  Receive Date: 20190418
  Receipt Date: 20190418
  Transmission Date: 20190711
  Serious: No
  Sender: FDA-Public Use
  Company Number: US-GLENMARK PHARMACEUTICALS-2019GMK039983

PATIENT

DRUGS (1)
  1. IMIQUIMOD CREAM USP, 5% [Suspect]
     Active Substance: IMIQUIMOD
     Indication: PRODUCT USED FOR UNKNOWN INDICATION
     Dosage: UNK
     Route: 065

REACTIONS (14)
  - Blister [Unknown]
  - Skin lesion [Unknown]
  - Erythema [Unknown]
  - Skin swelling [Unknown]
  - Dry skin [Unknown]
  - Skin hypertrophy [Unknown]
  - Skin burning sensation [Unknown]
  - Sexual dysfunction [Unknown]
  - Influenza like illness [Unknown]
  - Pruritus [Unknown]
  - Skin ulcer [Unknown]
  - Loss of personal independence in daily activities [Unknown]
  - Scab [Unknown]
  - Skin exfoliation [Unknown]
